FAERS Safety Report 5271890-8 (Version None)
Quarter: 2007Q1

REPORT INFORMATION
  Report Type: 
  Country: None (occurrence: None)
  Receive Date: 20070316
  Receipt Date: 20070306
  Transmission Date: 20070707
  Serious: Yes (Other)
  Sender: FDA-Public Use
  Company Number: GXKR2007DE02313

PATIENT
  Age: 53 Year
  Sex: Male

DRUGS (3)
  1. HALOPERIDOL [Suspect]
     Indication: SCHIZOPHRENIA, PARANOID TYPE
     Dosage: 15 MG
  2. DIAZEPAM [Concomitant]
  3. LEVOMEPROMAZINE (LEVOMEPROMAZINE) [Concomitant]

REACTIONS (8)
  - AGGRESSION [None]
  - AGITATION [None]
  - ASPIRATION [None]
  - COUGH [None]
  - DELUSION [None]
  - DISEASE RECURRENCE [None]
  - DYSARTHRIA [None]
  - DYSPHAGIA [None]
